FAERS Safety Report 4520998-0 (Version None)
Quarter: 2004Q4

REPORT INFORMATION
  Report Type: 
  Country: None (occurrence: None)
  Receive Date: 20041206
  Receipt Date: 20041125
  Transmission Date: 20050328
  Serious: No
  Sender: FDA-Public Use
  Company Number: 2004-115417-NL

PATIENT
  Age: 53 Year
  Sex: Male

DRUGS (20)
  1. MIRTAZAPINE [Suspect]
     Indication: ANXIETY
     Dosage: 30 MG ORAL
     Route: 048
     Dates: start: 20030930, end: 20040105
  2. MIRTAZAPINE [Suspect]
     Indication: DEPRESSION
     Dosage: 30 MG ORAL
     Route: 048
     Dates: start: 20030930, end: 20040105
  3. RABEPRAZOLE SODIUM [Suspect]
     Indication: ABDOMINAL PAIN
     Dosage: 20 MG ORAL
     Route: 048
     Dates: start: 20031113, end: 20040105
  4. RABEPRAZOLE SODIUM [Suspect]
     Indication: GASTROOESOPHAGEAL REFLUX DISEASE
     Dosage: 20 MG ORAL
     Route: 048
     Dates: start: 20031113, end: 20040105
  5. AMLODIPINE [Concomitant]
  6. ACETYLSALICYLIC ACID [Concomitant]
  7. CALCIUM CARBONATE [Concomitant]
  8. CHLORAL HYDRATE [Concomitant]
  9. DOMPERIDONE [Concomitant]
  10. EPOETIN ALFA [Concomitant]
  11. FUROSEMIDE [Concomitant]
  12. LEVOTHYROXINE SODIUM [Concomitant]
  13. LOSARTAN [Concomitant]
  14. METOPROLOL [Concomitant]
  15. ISOPHANE INSULIN [Concomitant]
  16. QUININE SULFATE [Concomitant]
  17. RAMIPRIL [Concomitant]
  18. REPLAVITE [Concomitant]
  19. TERAZOSIN HCL [Concomitant]
  20. SACCHARATED IRON OXIDE [Concomitant]

REACTIONS (2)
  - HEPATOTOXICITY [None]
  - PRURITUS [None]
